FAERS Safety Report 18494296 (Version 1)
Quarter: 2020Q4

REPORT INFORMATION
  Report Type: Spontaneous
  Country: JP (occurrence: JP)
  Receive Date: 20201112
  Receipt Date: 20201112
  Transmission Date: 20210114
  Serious: Yes (Hospitalization)
  Sender: FDA-Public Use
  Company Number: JP-SAKK-2020SA315289AA

PATIENT

DRUGS (2)
  1. LANTUS SOLOSTAR [Suspect]
     Active Substance: INSULIN GLARGINE
     Indication: TYPE 1 DIABETES MELLITUS
     Dosage: 3600 UNITS
     Route: 058
  2. INSULIN LISPRO BS INJECTION SOLOSTAR HU [SANOFI] [Suspect]
     Active Substance: INSULIN LISPRO
     Indication: TYPE 1 DIABETES MELLITUS
     Dosage: 2100 UNITS
     Route: 058

REACTIONS (6)
  - Hypoglycaemia [Unknown]
  - Blood lactic acid increased [Unknown]
  - Diabetic hepatopathy [Unknown]
  - Overdose [Unknown]
  - Glycolysis increased [Unknown]
  - Hepatic enzyme increased [Unknown]
